FAERS Safety Report 8006793-9 (Version None)
Quarter: 2011Q4

REPORT INFORMATION
  Report Type: 
  Country: None (occurrence: None)
  Receive Date: 20111227
  Receipt Date: 20111220
  Transmission Date: 20120403
  Serious: Yes (Disabling, Other)
  Sender: FDA-Public Use
  Company Number: PHEH2011US02353

PATIENT
  Sex: Female
  Weight: 53 kg

DRUGS (16)
  1. CIPROFLOXACIN [Concomitant]
     Dosage: 400 MG, EVERY 12 HOURS
     Route: 042
     Dates: start: 20110609
  2. ADVAIR DISKUS 100/50 [Concomitant]
     Indication: ASTHMA
  3. TOBI [Suspect]
     Dosage: 400 MG, EVERY 24 HOURS
     Route: 042
     Dates: start: 20110608, end: 20110714
  4. PULMOZYME [Concomitant]
     Indication: CYSTIC FIBROSIS
     Dosage: 2.5 MG, BID BY AEROSOL
  5. THEOPHYLLINE [Concomitant]
     Indication: ASTHMA
     Dosage: 200 MG, BID
     Route: 048
  6. ASMANEX TWISTHALER [Concomitant]
     Indication: ASTHMA
     Dosage: 220 UG, BID
  7. XOPENEX [Concomitant]
     Indication: ASTHMA
     Dosage: 1.25 MG, QID
  8. AZTREONAM [Concomitant]
     Indication: CYSTIC FIBROSIS
     Dosage: 75 MG, TID BY AEROSOL
  9. ANTIBIOTICS [Concomitant]
  10. SINGULAIR [Concomitant]
     Indication: RHINITIS ALLERGIC
     Dosage: 10 MG, UNK
     Route: 048
  11. TOBI [Suspect]
     Indication: CYSTIC FIBROSIS
     Dosage: 300 MG, BID
     Dates: start: 20001101, end: 20110609
  12. ALLEGRA [Concomitant]
     Indication: RHINITIS ALLERGIC
     Dosage: 1 DF, DAILY
     Route: 048
  13. PREDNISONE TAB [Concomitant]
     Indication: CYSTIC FIBROSIS
     Dosage: 20 MG, ONCE A DAY
     Route: 048
     Dates: start: 20110713
  14. ACTIGALL [Concomitant]
     Indication: CYSTIC FIBROSIS
     Dosage: 300 MG, BID
     Route: 048
  15. NEXIUM [Concomitant]
     Indication: CYSTIC FIBROSIS
     Dosage: 40 MG, QD
     Route: 048
  16. CEFTAZIDIME [Concomitant]
     Dosage: 2 G, EVERY 5 HOURS

REACTIONS (3)
  - INFECTIVE PULMONARY EXACERBATION OF CYSTIC FIBROSIS [None]
  - DEAFNESS [None]
  - TINNITUS [None]
